FAERS Safety Report 6884674-1 (Version None)
Quarter: 2010Q3

REPORT INFORMATION
  Report Type: 
  Country: None (occurrence: None)
  Receive Date: 20100727
  Receipt Date: 20100715
  Transmission Date: 20110219
  Serious: Yes (Life-Threatening, Hospitalization)
  Sender: FDA-Public Use
  Company Number: AXC-2010-000145

PATIENT
  Age: 60 Year
  Sex: Male
  Weight: 90 kg

DRUGS (5)
  1. PHOTOFRIN [Suspect]
     Indication: BARRETT'S OESOPHAGUS
     Dosage: INTRAVENOUS
     Dates: start: 20090119, end: 20090119
  2. PLAVIX [Concomitant]
  3. ASPIRIN [Concomitant]
  4. LISINOPRIL [Concomitant]
  5. LIPITOR [Concomitant]

REACTIONS (2)
  - OESOPHAGEAL STENOSIS [None]
  - POST PROCEDURAL HAEMORRHAGE [None]
